FAERS Safety Report 21178266 (Version 2)
Quarter: 2022Q3

REPORT INFORMATION
  Report Type: Spontaneous
  Country: US (occurrence: US)
  Receive Date: 20220805
  Receipt Date: 20220812
  Transmission Date: 20221026
  Serious: Yes (Other)
  Sender: FDA-Public Use
  Company Number: US-PFIZER INC-PV202200036427

PATIENT
  Age: 37 Year
  Sex: Male

DRUGS (4)
  1. NICOTINE [Suspect]
     Active Substance: NICOTINE
     Dosage: UNK
  2. COCAINE [Suspect]
     Active Substance: COCAINE
     Dosage: UNK
  3. CANNABIS SATIVA SUBSP. INDICA TOP [Suspect]
     Active Substance: CANNABIS SATIVA SUBSP. INDICA TOP
     Dosage: UNK
  4. LYSERGIDE [Suspect]
     Active Substance: LYSERGIDE
     Dosage: UNK

REACTIONS (1)
  - Illusion [Recovering/Resolving]
